APPROVED DRUG PRODUCT: TERBUTALINE SULFATE
Active Ingredient: TERBUTALINE SULFATE
Strength: 1MG/ML
Dosage Form/Route: INJECTABLE;INJECTION
Application: A076887 | Product #001 | TE Code: AP
Applicant: FRESENIUS KABI USA LLC
Approved: May 26, 2004 | RLD: No | RS: No | Type: RX